FAERS Safety Report 13178591 (Version 1)
Quarter: 2017Q1

REPORT INFORMATION
  Report Type: Spontaneous
  Country: US (occurrence: US)
  Receive Date: 20170202
  Receipt Date: 20170202
  Transmission Date: 20170428
  Serious: No
  Sender: FDA-Public Use
  Company Number: US-TEVA-728365ACC

PATIENT
  Sex: Female

DRUGS (17)
  1. FISH OIL [Concomitant]
     Active Substance: FISH OIL
     Route: 048
  2. IBRANCE [Concomitant]
     Active Substance: PALBOCICLIB
     Indication: BREAST CANCER STAGE IV
  3. METAMUCIL [Concomitant]
     Active Substance: PLANTAGO SEED
     Route: 048
  4. TRIAMTERENE - HYDROCHLOROTHIAZIDE [Concomitant]
     Dosage: TRIAMTERENE 50MG - HYDROCHLOROTHIAZIDE 25MG; TAKE 1 CAPSULE BY MOUTH ONCE DAILY
     Route: 048
  5. CYCLOBENZAPRINE [Suspect]
     Active Substance: CYCLOBENZAPRINE
     Route: 065
  6. ATIVAN [Concomitant]
     Active Substance: LORAZEPAM
     Indication: ANXIETY
     Dosage: EVERY 8 HRS AS NEEDED
     Route: 048
  7. FLONASE [Concomitant]
     Active Substance: FLUTICASONE PROPIONATE
     Dosage: PLACE 2 SPRAYS IN EACH NOSTRIL ONCE DAILY
  8. MEVACOR [Concomitant]
     Active Substance: LOVASTATIN
     Dosage: TAKE 40 MG BY MOUTH ONCE DALLY IN THE EVENING. ADMINISTER WITH EVENING MEAL
  9. PRILOSEC [Concomitant]
     Active Substance: OMEPRAZOLE MAGNESIUM
     Dosage: TAKE 1 OAPSULE BY MOUTH ONOE DAILY IN THE MORNING
     Route: 048
  10. FULVESTRANT IM [Concomitant]
     Route: 030
  11. IBRANCE [Concomitant]
     Active Substance: PALBOCICLIB
     Indication: METASTASES TO EYE
     Route: 048
  12. COZAAR [Concomitant]
     Active Substance: LOSARTAN POTASSIUM
     Dosage: 50 MILLIGRAM DAILY;
     Route: 048
  13. TOPROL XL [Concomitant]
     Active Substance: METOPROLOL SUCCINATE
     Dosage: 1 DOSAGE FORMS DAILY;
     Route: 048
  14. IBRANCE [Concomitant]
     Active Substance: PALBOCICLIB
     Indication: METASTASES TO PERITONEUM
     Route: 048
  15. VITAMIN D3 [Concomitant]
     Active Substance: CHOLECALCIFEROL
     Dosage: 2000 IU (INTERNATIONAL UNIT) DAILY;
     Route: 048
  16. ROXICODONE [Concomitant]
     Active Substance: OXYCODONE HYDROCHLORIDE
     Dosage: TAKE BY MOUTH EVERY SIX HOURS AS NEEDED
  17. IBRANCE [Concomitant]
     Active Substance: PALBOCICLIB
     Indication: ADRENAL GLAND CANCER METASTATIC

REACTIONS (2)
  - Palpitations [Unknown]
  - Drug hypersensitivity [Unknown]
